FAERS Safety Report 16780865 (Version 4)
Quarter: 2022Q2

REPORT INFORMATION
  Report Type: Spontaneous
  Country: US (occurrence: US)
  Receive Date: 20190906
  Receipt Date: 20220429
  Transmission Date: 20220721
  Serious: Yes (Hospitalization, Other)
  Sender: FDA-Public Use
  Company Number: US-AMICUS THERAPEUTICS, INC.-AMI_544

PATIENT
  Age: 57 Year
  Sex: Female
  Weight: 105.22 kg

DRUGS (13)
  1. GALAFOLD [Suspect]
     Active Substance: MIGALASTAT HYDROCHLORIDE
     Indication: Krabbe^s disease
     Dosage: 123 MILLIGRAM, QOD
     Route: 048
     Dates: start: 20190418
  2. IRBESARTAN [Concomitant]
     Active Substance: IRBESARTAN
     Indication: Product used for unknown indication
     Dosage: UNK
     Route: 065
  3. FLONASE                            /00972202/ [Concomitant]
     Indication: Product used for unknown indication
     Dosage: UNK
     Route: 065
  4. HYDROCHLOROTHIAZIDE [Concomitant]
     Active Substance: HYDROCHLOROTHIAZIDE
     Indication: Product used for unknown indication
     Dosage: UNK
     Route: 065
  5. RANITIDINE [Concomitant]
     Active Substance: RANITIDINE
     Indication: Product used for unknown indication
     Dosage: UNK
     Route: 065
  6. PERCOCET                           /00867901/ [Concomitant]
     Indication: Product used for unknown indication
     Dosage: UNK
     Route: 065
  7. EZETIMIBE [Concomitant]
     Active Substance: EZETIMIBE
     Indication: Product used for unknown indication
     Dosage: UNK
     Route: 065
  8. IMIPRAMINE HYDROCHLORIDE [Concomitant]
     Active Substance: IMIPRAMINE HYDROCHLORIDE
     Indication: Product used for unknown indication
     Dosage: UNK
     Route: 065
  9. FLUTICASONE PROPIONATE [Concomitant]
     Active Substance: FLUTICASONE PROPIONATE
     Indication: Product used for unknown indication
     Dosage: UNK
     Route: 065
  10. TYLENOL PM EXTRA STRENGTH [Concomitant]
     Active Substance: ACETAMINOPHEN\DIPHENHYDRAMINE HYDROCHLORIDE
     Indication: Product used for unknown indication
     Dosage: UNK
     Route: 065
  11. FAMOTIDINE [Concomitant]
     Active Substance: FAMOTIDINE
     Indication: Product used for unknown indication
     Dosage: UNK
     Route: 065
  12. LASIX [Concomitant]
     Active Substance: FUROSEMIDE
     Indication: Product used for unknown indication
     Dosage: UNK
     Route: 065
  13. VALSARTAN [Concomitant]
     Active Substance: VALSARTAN
     Indication: Product used for unknown indication
     Dosage: UNK
     Route: 065

REACTIONS (3)
  - Atrial fibrillation [Unknown]
  - Carpal tunnel syndrome [Unknown]
  - Off label use [Unknown]

NARRATIVE: CASE EVENT DATE: 20190418
